FAERS Safety Report 7674305-5 (Version None)
Quarter: 2011Q3

REPORT INFORMATION
  Report Type: 
  Country: None (occurrence: None)
  Receive Date: 20110810
  Receipt Date: 20110119
  Transmission Date: 20111222
  Serious: No
  Sender: FDA-Public Use
  Company Number: US-BAUSCH-2011BL001492

PATIENT
  Age: 54 Year
  Sex: Female
  Weight: 99 kg

DRUGS (3)
  1. AMLODIPINE [Concomitant]
  2. CROMOLYN SODIUM [Suspect]
     Indication: HYPERSENSITIVITY
     Route: 045
     Dates: start: 20101001, end: 20101228
  3. LISINOPRIL AND HYDROCHLOROTHIAZIDE [Concomitant]

REACTIONS (1)
  - NASAL DISCOMFORT [None]
